FAERS Safety Report 24355811 (Version 2)
Quarter: 2024Q4

REPORT INFORMATION
  Report Type: Spontaneous
  Country: JP (occurrence: JP)
  Receive Date: 20240924
  Receipt Date: 20241011
  Transmission Date: 20250114
  Serious: Yes (Hospitalization, Other)
  Sender: GLAXOSMITHKLINE
  Company Number: None

PATIENT

DRUGS (6)
  1. NUCALA [Suspect]
     Active Substance: MEPOLIZUMAB
     Indication: Asthma
     Dosage: 100 MG, Q4W
     Route: 058
     Dates: start: 20230519, end: 202310
  2. TRELEGY ELLIPTA [Suspect]
     Active Substance: FLUTICASONE FUROATE\UMECLIDINIUM BROMIDE\VILANTEROL TRIFENATATE
     Indication: Asthma
     Dosage: 200 ?G
     Route: 055
     Dates: start: 20221020, end: 20231211
  3. SINGULAIR [Concomitant]
     Active Substance: MONTELUKAST SODIUM
     Indication: Asthma
     Dosage: 10 MG
     Route: 048
     Dates: start: 20171104, end: 20231211
  4. HERBALS [Concomitant]
     Active Substance: HERBALS
     Dosage: 7.5 MG
     Route: 048
     Dates: start: 20220428, end: 20240110
  5. KENACORT [Concomitant]
     Active Substance: TRIAMCINOLONE
     Indication: Arthritis
     Dosage: 20 MG
     Route: 014
     Dates: start: 20230703
  6. ARTZ DISPO [Concomitant]
     Indication: Arthritis
     Dosage: 25 MG
     Route: 014
     Dates: start: 20230814

REACTIONS (13)
  - Anaphylactic reaction [Unknown]
  - Erythema [Unknown]
  - Pruritus [Unknown]
  - Rash [Unknown]
  - Tachycardia [Unknown]
  - Dysphonia [Unknown]
  - Dyspnoea [Unknown]
  - Throat tightness [Unknown]
  - Abdominal pain [Unknown]
  - Nausea [Unknown]
  - Vomiting [Unknown]
  - Face oedema [Unknown]
  - Pyrexia [Unknown]

NARRATIVE: CASE EVENT DATE: 20230731
